FAERS Safety Report 8436161-7 (Version None)
Quarter: 2012Q2

REPORT INFORMATION
  Report Type: 
  Country: None (occurrence: None)
  Receive Date: 20120614
  Receipt Date: 20120612
  Transmission Date: 20120825
  Serious: Yes (Hospitalization, Other)
  Sender: FDA-Public Use
  Company Number: US-PFIZER INC-2012041889

PATIENT
  Sex: Female
  Weight: 52.154 kg

DRUGS (2)
  1. INSULIN [Concomitant]
     Dosage: UNK
  2. RAPAMUNE [Suspect]
     Indication: HEART TRANSPLANT
     Dosage: 4 MG, 1X/DAY

REACTIONS (1)
  - CEREBROVASCULAR ACCIDENT [None]
